FAERS Safety Report 25182190 (Version 1)
Quarter: 2025Q2

REPORT INFORMATION
  Report Type: Spontaneous
  Country: US (occurrence: US)
  Receive Date: 20250410
  Receipt Date: 20250410
  Transmission Date: 20250717
  Serious: No
  Sender: OPTINOSE INC
  Company Number: US-OptiNose US, Inc-2024OPT000049

PATIENT
  Age: 70 Year
  Sex: Female

DRUGS (1)
  1. XHANCE [Suspect]
     Active Substance: FLUTICASONE PROPIONATE
     Indication: Nasal polyps
     Route: 045

REACTIONS (7)
  - Foreign body sensation in eyes [Unknown]
  - Amnesia [Recovered/Resolved]
  - Ocular discomfort [Recovered/Resolved]
  - Migraine [Recovered/Resolved]
  - Epistaxis [Recovered/Resolved]
  - Headache [Unknown]
  - Off label use [Recovered/Resolved]

NARRATIVE: CASE EVENT DATE: 20240101
